FAERS Safety Report 9207621 (Version 2)
Quarter: 2014Q1

REPORT INFORMATION
  Report Type: Spontaneous
  Country: US (occurrence: US)
  Receive Date: 20130403
  Receipt Date: 20140203
  Transmission Date: 20141002
  Serious: Yes (Hospitalization, Disabling)
  Sender: FDA-Public Use
  Company Number: US-BAYER-2013-039899

PATIENT
  Age: 44 Year
  Sex: Female

DRUGS (12)
  1. YAZ [Suspect]
     Dosage: UNK
     Dates: start: 201005
  2. YASMIN [Suspect]
     Dosage: UNK
     Dates: start: 201005
  3. OCELLA [Suspect]
     Dosage: UNK
     Dates: start: 201005
  4. ASPIRIN [Concomitant]
     Dosage: 81 MG, UNK
     Route: 048
  5. FERROUS SULFATE [Concomitant]
     Dosage: 140 MG, UNK
     Route: 048
  6. MULTIVITAMIN [Concomitant]
     Route: 048
  7. ONDANSETRON [Concomitant]
     Dosage: 4 MG, UNK
     Route: 048
  8. SERTRALINE [Concomitant]
     Dosage: 100 MG, QD
     Route: 048
  9. MORPHINE [Concomitant]
  10. DILAUDID [Concomitant]
  11. PROTONIX [Concomitant]
  12. ZOFRAN [Concomitant]

REACTIONS (8)
  - Gallbladder disorder [None]
  - Cholelithiasis [None]
  - Injury [None]
  - Pain [None]
  - Emotional distress [None]
  - Anxiety [None]
  - Psychological trauma [None]
  - Anhedonia [None]
